FAERS Safety Report 10195139 (Version 1)
Quarter: 2014Q2

REPORT INFORMATION
  Report Type: Spontaneous
  Country: US (occurrence: US)
  Receive Date: 20140526
  Receipt Date: 20140526
  Transmission Date: 20141212
  Serious: No
  Sender: FDA-Public Use
  Company Number: US-TEVA-479515USA

PATIENT
  Sex: Female

DRUGS (3)
  1. COPAXONE [Suspect]
     Indication: MULTIPLE SCLEROSIS
     Dates: start: 2014, end: 2014
  2. COPAXONE [Suspect]
     Dates: end: 2014
  3. COPAXONE [Suspect]
     Dosage: 20 MILLIGRAM DAILY;
     Dates: start: 2014

REACTIONS (2)
  - Rash [Unknown]
  - Urticaria [Unknown]
